FAERS Safety Report 16447133 (Version 1)
Quarter: 2019Q2

REPORT INFORMATION
  Report Type: Spontaneous
  Country: HU (occurrence: HU)
  Receive Date: 20190618
  Receipt Date: 20190618
  Transmission Date: 20190711
  Serious: Yes (Other)
  Sender: FDA-Public Use
  Company Number: PHHY2019HU038413

PATIENT
  Age: 44 Year
  Sex: Female

DRUGS (10)
  1. KISQALI [Suspect]
     Active Substance: RIBOCICLIB
     Dosage: UNK, CYCLIC (8TH CYCLE)
     Route: 065
     Dates: start: 20190527
  2. KISQALI [Suspect]
     Active Substance: RIBOCICLIB
     Dosage: 2 DF, CYCLIC (3RD CYCLE)
     Route: 065
  3. KISQALI [Suspect]
     Active Substance: RIBOCICLIB
     Dosage: UNK, CYCLIC (5TH CYCLE)
     Route: 065
     Dates: start: 20190304
  4. KISQALI [Suspect]
     Active Substance: RIBOCICLIB
     Dosage: UNK, CYCLIC (7TH CYCLE)
     Route: 065
     Dates: start: 20190429
  5. LETROZOLE. [Suspect]
     Active Substance: LETROZOLE
     Indication: PRODUCT USED FOR UNKNOWN INDICATION
     Dosage: UNK
     Route: 065
     Dates: start: 2018
  6. KISQALI [Suspect]
     Active Substance: RIBOCICLIB
     Indication: PRODUCT USED FOR UNKNOWN INDICATION
     Dosage: 3 DF, CYCLIC
     Route: 065
     Dates: start: 20181015
  7. KISQALI [Suspect]
     Active Substance: RIBOCICLIB
     Dosage: UNK, CYCLIC (2ND CYCLE)
     Route: 065
     Dates: start: 20181119
  8. ZOLEDRONATE [Suspect]
     Active Substance: ZOLEDRONIC ACID
     Indication: PRODUCT USED FOR UNKNOWN INDICATION
     Dosage: UNK
     Route: 065
     Dates: start: 2018
  9. KISQALI [Suspect]
     Active Substance: RIBOCICLIB
     Dosage: UNK, CYCLIC (4TH CYCLE)
     Route: 065
     Dates: start: 20190204
  10. KISQALI [Suspect]
     Active Substance: RIBOCICLIB
     Dosage: UNK, CYCLIC (6TH CYCLE)
     Route: 065
     Dates: start: 20190401

REACTIONS (3)
  - Electrocardiogram QT prolonged [Recovered/Resolved]
  - Neutropenia [Unknown]
  - Neutrophil count decreased [Recovering/Resolving]
